FAERS Safety Report 8733364 (Version 5)
Quarter: 2014Q2

REPORT INFORMATION
  Report Type: Spontaneous
  Country: US (occurrence: US)
  Receive Date: 20120821
  Receipt Date: 20131024
  Transmission Date: 20141212
  Serious: No
  Sender: FDA-Public Use
  Company Number: US-PFIZER INC-2012200406

PATIENT
  Age: 53 Year
  Sex: Female
  Weight: 53.52 kg

DRUGS (3)
  1. PREMPRO [Suspect]
     Indication: MENOPAUSAL SYMPTOMS
     Dosage: 1 DF, (0.45/1.5 MG) 1X/DAY
     Route: 048
     Dates: start: 201203, end: 2012
  2. PREMPRO [Suspect]
     Indication: HOT FLUSH
     Dosage: 1 DF, (0.625/2.5 MG) 1X/DAY
     Route: 048
     Dates: start: 2012
  3. PREMPRO [Suspect]
     Dosage: 1 DF, 1X/DAY

REACTIONS (4)
  - Drug ineffective [Unknown]
  - Sleep disorder [Not Recovered/Not Resolved]
  - Feeling abnormal [Not Recovered/Not Resolved]
  - Asthenia [Not Recovered/Not Resolved]
